FAERS Safety Report 12691048 (Version 1)
Quarter: 2016Q3

REPORT INFORMATION
  Report Type: Report from Study
  Country: US (occurrence: US)
  Receive Date: 20160826
  Receipt Date: 20160826
  Transmission Date: 20161109
  Serious: Yes (Hospitalization)
  Sender: FDA-Public Use
  Company Number: US-ABBVIE-16K-163-1704408-00

PATIENT
  Age: 76 Year
  Sex: Male
  Weight: 97.16 kg

DRUGS (2)
  1. HUMIRA [Suspect]
     Active Substance: ADALIMUMAB
     Indication: PSORIASIS
  2. HUMIRA [Suspect]
     Active Substance: ADALIMUMAB
     Indication: PSORIASIS
     Route: 058
     Dates: start: 20160615, end: 20160615

REACTIONS (8)
  - Scapula fracture [Unknown]
  - Device issue [Unknown]
  - Rib fracture [Unknown]
  - Road traffic accident [Unknown]
  - Drug dose omission [Unknown]
  - Ligament sprain [Unknown]
  - Laceration [Unknown]
  - Clavicle fracture [Unknown]

NARRATIVE: CASE EVENT DATE: 20160628
